FAERS Safety Report 5570347-4 (Version None)
Quarter: 2007Q4

REPORT INFORMATION
  Report Type: 
  Country: None (occurrence: None)
  Receive Date: 20071221
  Receipt Date: 20071219
  Transmission Date: 20080405
  Serious: Yes (Other)
  Sender: FDA-Public Use
  Company Number: US-SP-2007-04368

PATIENT
  Age: 17 Year
  Sex: Female

DRUGS (2)
  1. TUBERSOL [Suspect]
     Indication: TUBERCULIN TEST
     Route: 065
     Dates: start: 20071107
  2. ALBUTEROL [Concomitant]
     Dosage: P.R.N.

REACTIONS (3)
  - DYSPNOEA [None]
  - LIP SWELLING [None]
  - SWELLING FACE [None]
